FAERS Safety Report 7656463-1 (Version None)
Quarter: 2011Q3

REPORT INFORMATION
  Report Type: 
  Country: None (occurrence: None)
  Receive Date: 20110804
  Receipt Date: 20100616
  Transmission Date: 20111222
  Serious: No
  Sender: FDA-Public Use
  Company Number: US-BAUSCH-2010BL003278

PATIENT
  Age: 67 Year
  Sex: Female

DRUGS (7)
  1. CLOBETASOL PROPIONATE [Concomitant]
     Indication: SKIN DISORDER
  2. FOSAMAX [Concomitant]
     Indication: OSTEOPOROSIS
  3. VAGIFEM [Concomitant]
     Indication: VULVOVAGINAL DRYNESS
  4. SYSTANE [Concomitant]
     Indication: DRY EYE
  5. OPCON-A [Suspect]
     Indication: OCULAR HYPERAEMIA
     Route: 047
     Dates: start: 20091201, end: 20100301
  6. OPCON-A [Suspect]
     Indication: SEASONAL ALLERGY
     Route: 047
     Dates: start: 20091201, end: 20100301
  7. OPCON-A [Suspect]
     Indication: EYE IRRITATION
     Route: 047
     Dates: start: 20091201, end: 20100301

REACTIONS (2)
  - HYPERSENSITIVITY [None]
  - DRUG INEFFECTIVE [None]
